FAERS Safety Report 16413439 (Version 1)
Quarter: 2019Q2

REPORT INFORMATION
  Report Type: Spontaneous
  Country: US (occurrence: US)
  Receive Date: 20190611
  Receipt Date: 20190611
  Transmission Date: 20190711
  Serious: Yes (Death, Other)
  Sender: FDA-Public Use
  Company Number: US-BRISTOL-MYERS SQUIBB COMPANY-BMS-2019-056262

PATIENT
  Sex: Male

DRUGS (1)
  1. YERVOY [Suspect]
     Active Substance: IPILIMUMAB
     Indication: LARYNGEAL CANCER
     Dosage: 50 MILLIGRAM, Q3WK
     Route: 042

REACTIONS (2)
  - Death [Fatal]
  - Product use in unapproved indication [Unknown]
